FAERS Safety Report 19618573 (Version 4)
Quarter: 2021Q3

REPORT INFORMATION
  Report Type: Spontaneous
  Country: US (occurrence: US)
  Receive Date: 20210727
  Receipt Date: 20210729
  Transmission Date: 20211014
  Serious: Yes (Death, Disabling, Other)
  Sender: FDA-Public Use
  Company Number: US-CELGENEUS-USA-20210704965

PATIENT
  Age: 69 Year
  Sex: Male
  Weight: 80.6 kg

DRUGS (8)
  1. REVLIMID [Suspect]
     Active Substance: LENALIDOMIDE
     Indication: PLASMA CELL MYELOMA
     Route: 048
     Dates: start: 20170510, end: 20180103
  2. CALCIUM CARBONATE. [Concomitant]
     Active Substance: CALCIUM CARBONATE
     Indication: MINERAL SUPPLEMENTATION
     Route: 065
     Dates: start: 20210117
  3. MELPHALAN. [Suspect]
     Active Substance: MELPHALAN
     Indication: PLASMA CELL MYELOMA
     Route: 065
     Dates: start: 20180103
  4. ACETAMINOPHEN. [Concomitant]
     Active Substance: ACETAMINOPHEN
     Indication: BONE PAIN
     Route: 065
     Dates: start: 20190920
  5. ACYCLOVIR. [Concomitant]
     Active Substance: ACYCLOVIR
     Indication: ANTIVIRAL PROPHYLAXIS
     Route: 065
     Dates: start: 20170510
  6. FAMOTIDINE. [Concomitant]
     Active Substance: FAMOTIDINE
     Indication: VOMITING
     Route: 065
     Dates: start: 20190926
  7. MULTIVITAMIN WITH MINERAL [Concomitant]
     Active Substance: MINERALS\VITAMINS
     Indication: NUTRITIONAL SUPPLEMENTATION
     Route: 065
     Dates: start: 20180117
  8. GABAPENTIN. [Concomitant]
     Active Substance: GABAPENTIN
     Indication: PERIPHERAL SENSORY NEUROPATHY
     Route: 065
     Dates: start: 20170810

REACTIONS (2)
  - Acute myeloid leukaemia [Fatal]
  - Pancytopenia [Not Recovered/Not Resolved]

NARRATIVE: CASE EVENT DATE: 20180105
